FAERS Safety Report 10361206 (Version 3)
Quarter: 2015Q2

REPORT INFORMATION
  Report Type: Spontaneous
  Country: US (occurrence: None)
  Receive Date: 20140731
  Receipt Date: 20150506
  Transmission Date: 20150821
  Serious: Yes (Hospitalization, Other)
  Sender: FDA-Public Use
  Company Number: ADR-2014-01328

PATIENT
  Age: 62 Year
  Sex: Female

DRUGS (4)
  1. BACLOFEN. [Suspect]
     Active Substance: BACLOFEN
     Indication: PAIN
  2. INTRATHECAL BUPIVACAINE 20.0 MG/ML [Suspect]
     Active Substance: BUPIVACAINE
  3. CLONIDINE. [Suspect]
     Active Substance: CLONIDINE
     Indication: PAIN
  4. INTRATHECAL MORPHINE 50.0 MG/ML [Suspect]
     Active Substance: MORPHINE

REACTIONS (17)
  - Discomfort [None]
  - Device extrusion [None]
  - Arthralgia [None]
  - Back pain [None]
  - Incision site infection [None]
  - Device damage [None]
  - Somnolence [None]
  - Incorrect dose administered [None]
  - Ill-defined disorder [None]
  - Device malfunction [None]
  - Pain [None]
  - Post procedural infection [None]
  - Sepsis [None]
  - Back disorder [None]
  - Soft tissue inflammation [None]
  - Device issue [None]
  - Psychomotor hyperactivity [None]

NARRATIVE: CASE EVENT DATE: 20121201
